FAERS Safety Report 5728772-4 (Version None)
Quarter: 2008Q2

REPORT INFORMATION
  Report Type: 
  Country: None (occurrence: None)
  Receive Date: 20080506
  Receipt Date: 20080430
  Transmission Date: 20081010
  Serious: Yes (Other)
  Sender: FDA-Public Use
  Company Number: B0518924A

PATIENT
  Age: 69 Year
  Sex: Male
  Weight: 63 kg

DRUGS (1)
  1. WELLBUTRIN [Suspect]
     Indication: DEPRESSION
     Dosage: 150MG PER DAY
     Route: 065
     Dates: start: 20080410, end: 20080418

REACTIONS (1)
  - CYANOSIS [None]
